FAERS Safety Report 4740965-1 (Version None)
Quarter: 2005Q3

REPORT INFORMATION
  Report Type: 
  Country: None (occurrence: None)
  Receive Date: 20050810
  Receipt Date: 20050524
  Transmission Date: 20060218
  Serious: No
  Sender: FDA-Public Use
  Company Number: US-GLAXOSMITHKLINE-A0559918A

PATIENT
  Age: 62 Year
  Sex: Female

DRUGS (6)
  1. PAROXETINE HCL [Suspect]
     Indication: ANXIETY
     Dosage: 10MG PER DAY
     Route: 048
     Dates: start: 20050423, end: 20050427
  2. PAXIL [Suspect]
     Indication: ANXIETY
     Dosage: 10MG PER DAY
     Route: 048
     Dates: end: 20020101
  3. CARDIZEM [Concomitant]
  4. MULTI-VITAMINS [Concomitant]
  5. ASPIRIN [Concomitant]
  6. CALCIUM GLUCONATE [Concomitant]

REACTIONS (7)
  - CRYING [None]
  - DIZZINESS [None]
  - DRUG INEFFECTIVE [None]
  - DRUG WITHDRAWAL SYNDROME [None]
  - EMOTIONAL DISORDER [None]
  - ILL-DEFINED DISORDER [None]
  - IRRITABILITY [None]
